FAERS Safety Report 6187587-6 (Version None)
Quarter: 2009Q2

REPORT INFORMATION
  Report Type: 
  Country: None (occurrence: None)
  Receive Date: 20090508
  Receipt Date: 20090427
  Transmission Date: 20091009
  Serious: Yes (Other)
  Sender: FDA-Public Use
  Company Number: 2009AP001725

PATIENT
  Age: 73 Year
  Sex: Male

DRUGS (6)
  1. AMIODARONE HCL [Suspect]
  2. WARFARIN SODIUM [Suspect]
     Indication: CARDIOVASCULAR DISORDER
  3. ASPIRIN [Suspect]
     Indication: CARDIOVASCULAR DISORDER
  4. LASIX [Suspect]
     Indication: CARDIOVASCULAR DISORDER
  5. LEVOTHYROXINE SODIUM [Suspect]
     Indication: CARDIOVASCULAR DISORDER
  6. FERROUS GLUCONATE (FERROUS GLUCONATE) [Suspect]
     Indication: IRON DEFICIENCY ANAEMIA

REACTIONS (3)
  - COLITIS [None]
  - GASTROINTESTINAL TRACT ADENOMA [None]
  - PHLEBITIS [None]
